FAERS Safety Report 7796784-5 (Version None)
Quarter: 2011Q4

REPORT INFORMATION
  Report Type: 
  Country: None (occurrence: None)
  Receive Date: 20111005
  Receipt Date: 20110926
  Transmission Date: 20120403
  Serious: Yes (Other)
  Sender: FDA-Public Use
  Company Number: US-BAYER-2011-073359

PATIENT
  Age: 31 Year
  Sex: Female
  Weight: 63.946 kg

DRUGS (2)
  1. MIRENA [Suspect]
     Indication: CONTRACEPTION
     Dosage: UNK
     Route: 015
     Dates: start: 20110804, end: 20110804
  2. MIRENA [Suspect]
     Dosage: UNK

REACTIONS (1)
  - UTERINE PERFORATION [None]
